FAERS Safety Report 4304795-7 (Version None)
Quarter: 2004Q1

REPORT INFORMATION
  Report Type: 
  Country: None (occurrence: None)
  Receive Date: 20040226
  Receipt Date: 20031211
  Transmission Date: 20041129
  Serious: No
  Sender: FDA-Public Use
  Company Number: US-GLAXOSMITHKLINE-A0442780A

PATIENT
  Age: 50 Year
  Sex: Female

DRUGS (4)
  1. WELLBUTRIN [Suspect]
     Indication: HYPOMANIA
     Dosage: 150MG PER DAY
     Route: 048
     Dates: start: 20031211
  2. TOPAMAX [Concomitant]
  3. ESTROGEN [Concomitant]
  4. THYROID TAB [Concomitant]

REACTIONS (2)
  - AGITATION [None]
  - DRY MOUTH [None]
